FAERS Safety Report 22009726 (Version 1)
Quarter: 2023Q1

REPORT INFORMATION
  Report Type: Spontaneous
  Country: CO (occurrence: CO)
  Receive Date: 20230220
  Receipt Date: 20230220
  Transmission Date: 20230418
  Serious: Yes (Death)
  Sender: FDA-Public Use
  Company Number: CO-ABBOTT-2022A-1356651

PATIENT
  Age: 74 Year
  Sex: Male

DRUGS (3)
  1. VALPROIC ACID [Suspect]
     Active Substance: VALPROIC ACID
     Indication: Product used for unknown indication
     Route: 065
  2. FORTEO [Concomitant]
     Active Substance: TERIPARATIDE
     Indication: Osteoporosis
     Route: 058
     Dates: start: 20210920
  3. LEVETIRACETAM [Concomitant]
     Active Substance: LEVETIRACETAM
     Indication: Product used for unknown indication

REACTIONS (2)
  - Myocardial infarction [Fatal]
  - Cardiac arrest [Fatal]

NARRATIVE: CASE EVENT DATE: 20221128
